FAERS Safety Report 20601611 (Version 1)
Quarter: 2022Q1

REPORT INFORMATION
  Report Type: Spontaneous
  Country: US (occurrence: US)
  Receive Date: 20220316
  Receipt Date: 20220316
  Transmission Date: 20220423
  Serious: No
  Sender: FDA-Public Use
  Company Number: US-TEVA-2022-US-2010171

PATIENT
  Age: 48 Year
  Sex: Female

DRUGS (2)
  1. LETROZOLE [Suspect]
     Active Substance: LETROZOLE
     Route: 065
     Dates: start: 202102
  2. LETROZOLE [Suspect]
     Active Substance: LETROZOLE
     Route: 065
     Dates: start: 202009, end: 202102

REACTIONS (10)
  - Urinary tract infection [Unknown]
  - Lymphoedema [Unknown]
  - Wrong product administered [Unknown]
  - Pain [Recovered/Resolved]
  - Product packaging issue [Unknown]
  - Peripheral swelling [Unknown]
  - Drug intolerance [Unknown]
  - White blood cell count increased [Unknown]
  - Escherichia test positive [Unknown]
  - Feeling abnormal [Unknown]

NARRATIVE: CASE EVENT DATE: 20210101
